FAERS Safety Report 21415455 (Version 1)
Quarter: 2022Q4

REPORT INFORMATION
  Report Type: Spontaneous
  Country: US (occurrence: US)
  Receive Date: 20221006
  Receipt Date: 20221006
  Transmission Date: 20230113
  Serious: No
  Sender: FDA-Public Use
  Company Number: US-GLENMARK PHARMACEUTICALS-2022GMK072666

PATIENT

DRUGS (1)
  1. FLUOCINOLONE ACETONIDE [Suspect]
     Active Substance: FLUOCINOLONE ACETONIDE
     Indication: Otitis externa
     Dosage: 3 DROP, (3 DROPS FOR 7 DAYS TO BOTH EARS THEN 1 DROP AFTER 7 DAYS AT NIGHT)
     Route: 061
     Dates: start: 20220520, end: 20220521

REACTIONS (7)
  - Ear swelling [Recovered/Resolved]
  - Ear pain [Recovered/Resolved]
  - Ear haemorrhage [Recovered/Resolved]
  - Product use issue [Unknown]
  - Adverse drug reaction [Recovered/Resolved]
  - Hypersensitivity [Recovered/Resolved]
  - Ear infection [Recovered/Resolved]

NARRATIVE: CASE EVENT DATE: 20220520
